FAERS Safety Report 15222152 (Version 1)
Quarter: 2018Q4

REPORT INFORMATION
  Report Type: Spontaneous
  Country: US (occurrence: US)
  Receive Date: 20180731
  Receipt Date: 20180731
  Transmission Date: 20190204
  Serious: No
  Sender: FDA-Public Use
  Company Number: US-MCGUFF PHARMACEUTICALS, INC.-2053028

PATIENT
  Age: 68 Year
  Sex: Female
  Weight: 37.73 kg

DRUGS (4)
  1. CALCIUM GLUCONATE 10% [Concomitant]
     Active Substance: CALCIUM GLUCONATE
     Route: 041
     Dates: start: 20180606, end: 20180606
  2. STERILE WATER FOR INJECTION [Concomitant]
     Active Substance: WATER
     Route: 041
     Dates: start: 20180606, end: 20180606
  3. ASCOR [Suspect]
     Active Substance: ASCORBIC ACID
     Route: 041
     Dates: start: 20180606, end: 20180606
  4. SODIUM BICARBONATE 8.4% [Concomitant]
     Active Substance: SODIUM BICARBONATE
     Route: 041
     Dates: start: 20180606, end: 20180606

REACTIONS (4)
  - Pain [Recovered/Resolved]
  - Nausea [Recovered/Resolved]
  - Asthenia [Recovered/Resolved]
  - Vomiting [Recovered/Resolved]

NARRATIVE: CASE EVENT DATE: 20180606
